FAERS Safety Report 6345154-5 (Version None)
Quarter: 2009Q3

REPORT INFORMATION
  Report Type: 
  Country: None (occurrence: None)
  Receive Date: 20090909
  Receipt Date: 20090831
  Transmission Date: 20100115
  Serious: Yes (Life-Threatening, Hospitalization)
  Sender: FDA-Public Use
  Company Number: US-JNJFOC-20090404575

PATIENT
  Sex: Female
  Weight: 88 kg

DRUGS (5)
  1. REMICADE [Suspect]
     Route: 042
  2. REMICADE [Suspect]
     Route: 042
  3. REMICADE [Suspect]
     Indication: RHEUMATOID ARTHRITIS
     Route: 042
  4. PREDNISONE TAB [Concomitant]
     Dosage: DURATION OF LESS THAN 3 MONTHS
  5. METHOTREXATE [Concomitant]
     Dosage: LESS THAN 3 MONTHS

REACTIONS (10)
  - CARDIAC INFECTION [None]
  - CELLULITIS [None]
  - INFECTION [None]
  - INFUSION RELATED REACTION [None]
  - KIDNEY INFECTION [None]
  - LOSS OF CONSCIOUSNESS [None]
  - MOVEMENT DISORDER [None]
  - NODULE [None]
  - STAPHYLOCOCCAL INFECTION [None]
  - TUBERCULOSIS [None]
